FAERS Safety Report 6896540-6 (Version None)
Quarter: 2010Q3

REPORT INFORMATION
  Report Type: 
  Country: None (occurrence: None)
  Receive Date: 20100802
  Receipt Date: 20100720
  Transmission Date: 20110219
  Serious: Yes (Life-Threatening, Hospitalization, Other)
  Sender: FDA-Public Use
  Company Number: PHHY2010US48158

PATIENT
  Sex: Male
  Weight: 77.2 kg

DRUGS (4)
  1. AFINITOR [Suspect]
     Indication: COLON CANCER
     Dosage: 10 MG DAILY
     Route: 048
     Dates: start: 20100601
  2. AFINITOR [Suspect]
     Dosage: 5 MG DAILY
     Route: 048
     Dates: start: 20100629, end: 20100706
  3. AVASTIN [Concomitant]
     Indication: COLON CANCER
     Dosage: 800 MG EVERY 2 WEEKS
     Route: 042
     Dates: start: 20080806
  4. XELODA [Concomitant]
     Indication: COLON CANCER
     Dosage: 1500 MG, BID
     Route: 042
     Dates: start: 20080806, end: 20100617

REACTIONS (11)
  - CHEST DISCOMFORT [None]
  - CHEST PAIN [None]
  - DYSPNOEA [None]
  - MUSCLE SPASMS [None]
  - ORAL PAIN [None]
  - PAINFUL RESPIRATION [None]
  - PLATELET COUNT DECREASED [None]
  - PNEUMONITIS [None]
  - PULMONARY EMBOLISM [None]
  - PYREXIA [None]
  - RESPIRATORY RATE INCREASED [None]
